FAERS Safety Report 17889558 (Version 1)
Quarter: 2020Q2

REPORT INFORMATION
  Report Type: Spontaneous
  Country: US (occurrence: US)
  Receive Date: 20200612
  Receipt Date: 20200612
  Transmission Date: 20200714
  Serious: No
  Sender: FDA-Public Use
  Company Number: None

PATIENT
  Age: 77 Year
  Sex: Male
  Weight: 109.12 kg

DRUGS (4)
  1. DOCETAXEL. [Suspect]
     Active Substance: DOCETAXEL
     Indication: PROSTATE CANCER
     Route: 042
     Dates: start: 20200112, end: 20200612
  2. XGEVA [Concomitant]
     Active Substance: DENOSUMAB
  3. NEULASTA [Suspect]
     Active Substance: PEGFILGRASTIM
     Indication: PROSTATE CANCER
     Route: 058
     Dates: start: 20200115, end: 20200612
  4. ABIRATERONE. [Concomitant]
     Active Substance: ABIRATERONE ACETATE

REACTIONS (1)
  - Death [None]

NARRATIVE: CASE EVENT DATE: 20200612
